FAERS Safety Report 7939577-8 (Version None)
Quarter: 2011Q4

REPORT INFORMATION
  Report Type: 
  Country: None (occurrence: None)
  Receive Date: 20111125
  Receipt Date: 20111118
  Transmission Date: 20120403
  Serious: Yes (Hospitalization, Other)
  Sender: FDA-Public Use
  Company Number: US-AMGEN-USASP2011056385

PATIENT
  Age: 45 Year
  Sex: Female

DRUGS (2)
  1. ENBREL [Suspect]
     Indication: RHEUMATOID ARTHRITIS
     Dosage: UNK
  2. ENBREL [Suspect]
     Dosage: 50 MG, QWK
     Dates: start: 20050701, end: 20110801

REACTIONS (12)
  - SINUSITIS [None]
  - ORAL CANDIDIASIS [None]
  - HYPERSENSITIVITY [None]
  - URINARY TRACT INFECTION [None]
  - TOOTH EXTRACTION [None]
  - VULVOVAGINAL CANDIDIASIS [None]
  - HEART RATE IRREGULAR [None]
  - KIDNEY INFECTION [None]
  - FATIGUE [None]
  - NASOPHARYNGITIS [None]
  - NEPHROLITHIASIS [None]
  - BRONCHITIS [None]
